FAERS Safety Report 10812491 (Version 2)
Quarter: 2015Q1

REPORT INFORMATION
  Report Type: Report from Study
  Country: US (occurrence: US)
  Receive Date: 20150218
  Receipt Date: 20150304
  Transmission Date: 20150721
  Serious: Yes (Hospitalization)
  Sender: FDA-Public Use
  Company Number: US-BIOGENIDEC-2015BI014258

PATIENT
  Age: 47 Year
  Sex: Female

DRUGS (1)
  1. TECFIDERA [Suspect]
     Active Substance: DIMETHYL FUMARATE
     Indication: MULTIPLE SCLEROSIS
     Route: 048
     Dates: start: 20130901, end: 20140901

REACTIONS (5)
  - Platelet count decreased [Unknown]
  - Orthostatic intolerance [Recovered/Resolved]
  - White blood cell count decreased [Unknown]
  - Syncope [Unknown]
  - Flushing [Unknown]

NARRATIVE: CASE EVENT DATE: 20150202
